FAERS Safety Report 9605875 (Version 1)
Quarter: 2013Q4

REPORT INFORMATION
  Report Type: Spontaneous
  Country: US (occurrence: US)
  Receive Date: 20131008
  Receipt Date: 20131008
  Transmission Date: 20140711
  Serious: Yes (Hospitalization)
  Sender: FDA-Public Use
  Company Number: US-ROCHE-1285930

PATIENT
  Age: 77 Year
  Sex: Female

DRUGS (1)
  1. XELODA [Suspect]
     Indication: COLON CANCER
     Dosage: 14 DAY CYCLE
     Route: 048

REACTIONS (1)
  - Pneumothorax [Not Recovered/Not Resolved]
